FAERS Safety Report 11867546 (Version 2)
Quarter: 2016Q1

REPORT INFORMATION
  Report Type: Report from Study
  Country: JP (occurrence: JP)
  Receive Date: 20151224
  Receipt Date: 20160206
  Transmission Date: 20160526
  Serious: Yes (Life-Threatening, Hospitalization, Disabling, Other)
  Sender: FDA-Public Use
  Company Number: JP-BRISTOL-MYERS SQUIBB COMPANY-BMS-2015-090356

PATIENT
  Age: 50 Year
  Sex: Female

DRUGS (18)
  1. NIVOLUMAB [Suspect]
     Active Substance: NIVOLUMAB
     Dosage: 176.5 MG, QD
     Route: 041
     Dates: start: 2015, end: 2015
  2. NIVOLUMAB [Suspect]
     Active Substance: NIVOLUMAB
     Dosage: 176.5 MG, QD
     Route: 041
     Dates: start: 2015, end: 2015
  3. NIVOLUMAB [Suspect]
     Active Substance: NIVOLUMAB
     Dosage: 176.5 MG, QD
     Route: 041
     Dates: start: 20150916, end: 20150916
  4. IPILIMUMAB [Suspect]
     Active Substance: IPILIMUMAB
     Indication: MALIGNANT MELANOMA
     Dosage: 259.35 MG, UNK
     Route: 041
     Dates: start: 20151007, end: 20151007
  5. RESTAMIN                           /00000401/ [Concomitant]
     Indication: PRODUCT USED FOR UNKNOWN INDICATION
     Dosage: UNK
     Route: 065
     Dates: start: 20151028
  6. NIVOLUMAB [Suspect]
     Active Substance: NIVOLUMAB
     Dosage: 176.5 MG, QD
     Route: 041
     Dates: start: 2015, end: 2015
  7. NIVOLUMAB [Suspect]
     Active Substance: NIVOLUMAB
     Dosage: 176.5 MG, QD
     Route: 041
     Dates: start: 2015, end: 2015
  8. NIVOLUMAB [Suspect]
     Active Substance: NIVOLUMAB
     Dosage: 176.5 MG, QD
     Route: 041
     Dates: start: 2015, end: 2015
  9. CALONAL [Concomitant]
     Active Substance: ACETAMINOPHEN
     Indication: PRODUCT USED FOR UNKNOWN INDICATION
     Route: 065
  10. NIVOLUMAB [Suspect]
     Active Substance: NIVOLUMAB
     Dosage: 176.5 MG, QD
     Route: 041
     Dates: start: 2015, end: 2015
  11. NIVOLUMAB [Suspect]
     Active Substance: NIVOLUMAB
     Dosage: 176.5 MG, QD
     Route: 041
     Dates: start: 2015, end: 2015
  12. NIVOLUMAB [Suspect]
     Active Substance: NIVOLUMAB
     Dosage: 176.5 MG, QD
     Route: 041
     Dates: start: 2015, end: 2015
  13. NIVOLUMAB [Suspect]
     Active Substance: NIVOLUMAB
     Dosage: 176.5 MG, QD
     Route: 041
     Dates: start: 2015, end: 2015
  14. TAKEPRON [Concomitant]
     Active Substance: LANSOPRAZOLE
     Indication: PRODUCT USED FOR UNKNOWN INDICATION
     Route: 065
  15. NIVOLUMAB [Suspect]
     Active Substance: NIVOLUMAB
     Indication: MALIGNANT MELANOMA
     Dosage: 176.5 MG, QD
     Route: 041
     Dates: start: 20150105, end: 20150105
  16. NIVOLUMAB [Suspect]
     Active Substance: NIVOLUMAB
     Dosage: 176.5 MG, QD
     Route: 041
     Dates: start: 2015, end: 2015
  17. NIVOLUMAB [Suspect]
     Active Substance: NIVOLUMAB
     Dosage: 176.5 MG, QD
     Route: 041
     Dates: start: 2015, end: 2015
  18. IPILIMUMAB [Suspect]
     Active Substance: IPILIMUMAB
     Dosage: 259.35 MG, UNK
     Route: 041
     Dates: start: 20151028, end: 20151028

REACTIONS (4)
  - Hypopituitarism [Recovered/Resolved]
  - Adrenal insufficiency [Recovered/Resolved]
  - Liver disorder [Not Recovered/Not Resolved]
  - Hypophysitis [Recovered/Resolved]

NARRATIVE: CASE EVENT DATE: 20151030
